FAERS Safety Report 5883514-7 (Version None)
Quarter: 2008Q3

REPORT INFORMATION
  Report Type: 
  Country: None (occurrence: None)
  Receive Date: 20080912
  Receipt Date: 20080912
  Transmission Date: 20090109
  Serious: Yes (Life-Threatening)
  Sender: FDA-Public Use
  Company Number: None

PATIENT
  Age: 51 Year
  Sex: Female
  Weight: 52.1637 kg

DRUGS (1)
  1. MELOXICAM [Suspect]
     Indication: ARTHRITIS
     Dosage: 15MG ONE A DAY- PO
     Route: 048
     Dates: start: 20080826, end: 20080831

REACTIONS (3)
  - ANAEMIA [None]
  - DRUG HYPERSENSITIVITY [None]
  - WHITE BLOOD CELL COUNT DECREASED [None]
